FAERS Safety Report 13850899 (Version 2)
Quarter: 2017Q3

REPORT INFORMATION
  Report Type: Spontaneous
  Country: GB (occurrence: GB)
  Receive Date: 20170809
  Receipt Date: 20170821
  Transmission Date: 20171127
  Serious: Yes (Hospitalization, Other)
  Sender: FDA-Public Use
  Company Number: GB-TEVA-792891ACC

PATIENT
  Age: 44 Year
  Sex: Male

DRUGS (1)
  1. SILDENAFIL. [Suspect]
     Active Substance: SILDENAFIL
     Dosage: 150 MILLIGRAM DAILY;
     Route: 065

REACTIONS (2)
  - Dyspnoea [Unknown]
  - Speech disorder [Unknown]

NARRATIVE: CASE EVENT DATE: 20170726
